FAERS Safety Report 24432685 (Version 3)
Quarter: 2024Q4

REPORT INFORMATION
  Report Type: Spontaneous
  Country: US (occurrence: US)
  Receive Date: 20241014
  Receipt Date: 20241106
  Transmission Date: 20250115
  Serious: Yes (Other)
  Sender: BAXTER
  Company Number: US-BAXTER-2024BAX024051

PATIENT
  Age: 76 Year
  Sex: Female
  Weight: 92.2 kg

DRUGS (13)
  1. MESNA [Suspect]
     Active Substance: MESNA
     Dosage: 300 MG/M2, CYCLIC (CYCLE 1, 3, DAYS 1-3), DOSAGE FORM: UNKNOWN
     Route: 065
     Dates: start: 20230612
  2. CYCLOPHOSPHAMIDE [Suspect]
     Active Substance: CYCLOPHOSPHAMIDE
     Indication: B-cell type acute leukaemia
     Dosage: 150 MG/M2, CYCLIC (CYCLE 1, 3, EVERY 12 HRS X 6 DOSES, DAYS 1-3)
     Route: 042
     Dates: start: 20230612, end: 20230615
  3. VINCRISTINE SULFATE [Suspect]
     Active Substance: VINCRISTINE SULFATE
     Indication: B-cell type acute leukaemia
     Dosage: 2 MG CYCLIC (DAY 1, DAY 8), ONGOING
     Route: 042
     Dates: start: 20230612, end: 20230619
  4. INOTUZUMAB OZOGAMICIN [Suspect]
     Active Substance: INOTUZUMAB OZOGAMICIN
     Indication: B-cell type acute leukaemia
     Dosage: CYCLE 1: 0.6 MG/M2 D2, 0.3 MG/M2 D8 CYCLES 2-4: 0.3 MG/M2 D2, 0.3 MG/M2 D8
     Route: 042
     Dates: start: 20240612
  5. INOTUZUMAB OZOGAMICIN [Suspect]
     Active Substance: INOTUZUMAB OZOGAMICIN
     Dosage: 0.9 MG/M2 CYCLIC (0.6 MG/M2 D2 AND 0.3 MG/M2) D8, CYCLE 1
     Route: 042
     Dates: start: 20230613, end: 20230619
  6. CYTARABINE [Suspect]
     Active Substance: CYTARABINE
     Indication: B-cell type acute leukaemia
     Dosage: 100  MG CYCLIC (DAY 2, DAY 8), ONGOING
     Route: 037
     Dates: start: 20230613
  7. CYTARABINE [Suspect]
     Active Substance: CYTARABINE
     Dosage: 500 MG/M2, CYCLIC (CYCLE 2,4, 0.5 G/M2/DOSE EVERY 12 HRS X 4 DOSES, DAYS 2, 3)
     Route: 042
     Dates: start: 20230612, end: 20230620
  8. METHOTREXATE SODIUM [Suspect]
     Active Substance: METHOTREXATE SODIUM
     Indication: B-cell type acute leukaemia
     Dosage: 250 MG/M2, CYCLIC (CYCLE2, 4, DAY 1)
     Route: 042
     Dates: start: 20220612, end: 20230627
  9. METHOTREXATE SODIUM [Suspect]
     Active Substance: METHOTREXATE SODIUM
     Dosage: 12 MG CYCLIC (DAY 2, DAY 8)
     Route: 037
     Dates: start: 20230613
  10. METHYLPREDNISOLONE SODIUM SUCCINATE [Suspect]
     Active Substance: METHYLPREDNISOLONE SODIUM SUCCINATE
     Indication: Acute lymphocytic leukaemia
     Dosage: 50 MG, CYCLIC (CYCLE 2, 4, EVERY 12 HS X 6 DOSES, DAYS 1-3)
     Route: 042
     Dates: start: 20230612
  11. RITUXIMAB [Suspect]
     Active Substance: RITUXIMAB
     Dosage: 375 MG/M2, CYCLIC (CYCLE 1-4, DAY 2, DAY 8)
     Route: 042
     Dates: start: 20230612
  12. DEXAMETHASONE [Suspect]
     Active Substance: DEXAMETHASONE
     Dosage: 20 MG, CYCLIC (CYCLE 1, 3, DAYS 1-4, DAYS 11-14)
     Route: 042
     Dates: start: 20230612
  13. DEXAMETHASONE [Suspect]
     Active Substance: DEXAMETHASONE
     Dosage: 20 MG CYCLIC (20 MG, CYCLE 1, 3, SCHEDULE DAYS 1-4, DAYS 11-14
     Route: 048
     Dates: start: 20230612

REACTIONS (3)
  - Neutrophil count decreased [Recovered/Resolved]
  - Lymphocyte count decreased [Recovered/Resolved]
  - White blood cell count decreased [Recovered/Resolved]

NARRATIVE: CASE EVENT DATE: 20230616
